FAERS Safety Report 5562668-6 (Version None)
Quarter: 2007Q4

REPORT INFORMATION
  Report Type: 
  Country: None (occurrence: None)
  Receive Date: 20071217
  Receipt Date: 20071129
  Transmission Date: 20080405
  Serious: Yes (Hospitalization)
  Sender: FDA-Public Use
  Company Number: FR-BAYER-200717611GPV

PATIENT
  Age: 78 Year
  Sex: Female

DRUGS (4)
  1. CIFLOX [Suspect]
     Indication: DRUG USE FOR UNKNOWN INDICATION
     Route: 048
     Dates: end: 20071030
  2. VALSARTAN AND HYDROCHLOROTHIAZIDE [Interacting]
     Indication: DRUG USE FOR UNKNOWN INDICATION
     Route: 048
     Dates: end: 20071030
  3. DEXTROPROPOXYPHENE [Concomitant]
     Indication: BACK PAIN
     Route: 065
  4. ACETAMINOPHEN [Concomitant]
     Indication: BACK PAIN
     Route: 065

REACTIONS (1)
  - RENAL FAILURE ACUTE [None]
